FAERS Safety Report 18233827 (Version 1)
Quarter: 2020Q3

REPORT INFORMATION
  Report Type: Report from Study
  Country: CA (occurrence: CA)
  Receive Date: 20200904
  Receipt Date: 20200904
  Transmission Date: 20201103
  Serious: Yes (Other)
  Sender: FDA-Public Use
  Company Number: CA-NALPROPION PHARMACEUTICALS INC.-2020-010109

PATIENT

DRUGS (6)
  1. CONTRAVE [Suspect]
     Active Substance: BUPROPION HYDROCHLORIDE\NALTREXONE HYDROCHLORIDE
     Dosage: 90 MG/8 MG ONE TABLET IN THE MORNING AND ONE IN THE EVENING START DATE: APPROX. 18/MAY/2020
     Route: 048
     Dates: start: 202005, end: 20200728
  2. CONTRAVE [Suspect]
     Active Substance: BUPROPION HYDROCHLORIDE\NALTREXONE HYDROCHLORIDE
     Dosage: 90 MG/8 MG TWO IN THE MORNING AND TWO IN THE EVENING START DATE: APPROX. 26/AUG/2019
     Route: 048
     Dates: start: 201908
  3. TRAZODONE [Concomitant]
     Active Substance: TRAZODONE HYDROCHLORIDE
     Indication: PRODUCT USED FOR UNKNOWN INDICATION
     Dosage: UNK
  4. CONTRAVE [Suspect]
     Active Substance: BUPROPION HYDROCHLORIDE\NALTREXONE HYDROCHLORIDE
     Dosage: 90 MG/8 MG TWO IN THE MORNING AND ONE IN THE EVENING START DATE APPROX. 19/AUG/2019
     Route: 048
     Dates: start: 201908, end: 201908
  5. CONTRAVE [Suspect]
     Active Substance: BUPROPION HYDROCHLORIDE\NALTREXONE HYDROCHLORIDE
     Indication: WEIGHT CONTROL
     Dosage: 90 MG/8 MG START DATE: APPROXIMATELY 05/AUG/2019 (1 DOSAGE FORMS, 1 IN 1 D)
     Route: 048
     Dates: start: 201908, end: 201908
  6. CONTRAVE [Suspect]
     Active Substance: BUPROPION HYDROCHLORIDE\NALTREXONE HYDROCHLORIDE
     Dosage: 90 MG/8 MG ONE IN THE MORNING AND ONE IN THE EVENING START DATE: APPROX. 12/AUG/2019
     Route: 048
     Dates: start: 201908, end: 201908

REACTIONS (16)
  - Crying [Recovered/Resolved]
  - Feeling abnormal [Recovered/Resolved]
  - Confusional state [Recovering/Resolving]
  - Condition aggravated [Unknown]
  - Mood altered [Not Recovered/Not Resolved]
  - Vomiting [Recovered/Resolved]
  - Therapeutic response unexpected [Unknown]
  - Depression [Recovering/Resolving]
  - Nausea [Recovered/Resolved]
  - Anxiety [Recovering/Resolving]
  - Drug ineffective [Unknown]
  - Cholelithiasis [Unknown]
  - Negative thoughts [Recovered/Resolved]
  - Memory impairment [Recovered/Resolved]
  - Intentional product use issue [Unknown]
  - Tremor [Not Recovered/Not Resolved]

NARRATIVE: CASE EVENT DATE: 2019
